FAERS Safety Report 8811348 (Version 2)
Quarter: 2013Q1

REPORT INFORMATION
  Report Type: Spontaneous
  Country: US (occurrence: None)
  Receive Date: 20120921
  Receipt Date: 20130211
  Transmission Date: 20140127
  Serious: Yes (Hospitalization, Disabling, Other)
  Sender: FDA-Public Use
  Company Number: ACO_31963_2012

PATIENT
  Sex: Female
  Weight: 59 kg

DRUGS (4)
  1. AMPYRA [Suspect]
     Indication: GAIT DISTURBANCE
     Route: 048
     Dates: start: 2010
  2. GILENYA [Suspect]
     Indication: MULTIPLE SCLEROSIS
     Route: 048
  3. ALL OTHER THERAPEUTIC PRODUCTS [Concomitant]
  4. THYROID THERAPY [Concomitant]

REACTIONS (5)
  - Wheelchair user [None]
  - Abasia [None]
  - Clostridial infection [None]
  - Dizziness [None]
  - Feeling abnormal [None]
